FAERS Safety Report 4300633-7 (Version None)
Quarter: 2004Q1

REPORT INFORMATION
  Report Type: 
  Country: None (occurrence: None)
  Receive Date: 20040220
  Receipt Date: 20040212
  Transmission Date: 20041129
  Serious: Yes (Hospitalization)
  Sender: FDA-Public Use
  Company Number: SE-BRISTOL-MYERS SQUIBB COMPANY-12505384

PATIENT

DRUGS (2)
  1. PARAPLATIN [Suspect]
     Indication: INTRAOCULAR MELANOMA
     Route: 042
  2. CYTOSAR-U [Suspect]
     Indication: INTRAOCULAR MELANOMA
     Route: 042

REACTIONS (1)
  - HAEMATOMA [None]
